FAERS Safety Report 4369659-1 (Version None)
Quarter: 2004Q2

REPORT INFORMATION
  Report Type: 
  Country: None (occurrence: None)
  Receive Date: 20040603
  Receipt Date: 20040527
  Transmission Date: 20050107
  Serious: Yes (Hospitalization, Other)
  Sender: FDA-Public Use
  Company Number: BW-BRISTOL-MYERS SQUIBB COMPANY-12597571

PATIENT
  Age: 30 Year
  Sex: Female

DRUGS (3)
  1. EFAVIRENZ [Suspect]
     Indication: HIV INFECTION
     Dates: start: 20031103
  2. DIDANOSINE [Suspect]
     Indication: HIV INFECTION
     Dates: start: 20031103
  3. ZIDOVUDINE [Suspect]
     Indication: HIV INFECTION
     Dates: start: 20031103

REACTIONS (4)
  - DIZZINESS [None]
  - HEAD INJURY [None]
  - ROAD TRAFFIC ACCIDENT [None]
  - VOMITING [None]
